FAERS Safety Report 8800782 (Version 1)
Quarter: 2012Q4

REPORT INFORMATION
  Report Type: 
  Country: DE (occurrence: JP)
  Receive Date: 20120921
  Receipt Date: 20120921
  Transmission Date: 20130627
  Serious: Yes (Other)
  Sender: FDA-Public Use
  Company Number: JP-BRISTOL-MYERS SQUIBB COMPANY-16967325

PATIENT
  Age: 78 Year
  Sex: Male

DRUGS (3)
  1. METGLUCO [Suspect]
     Indication: DIABETES MELLITUS
     Route: 048
  2. BASEN [Concomitant]
  3. AMARYL [Concomitant]

REACTIONS (2)
  - Renal impairment [Unknown]
  - Malaise [Unknown]
